FAERS Safety Report 5503904-1 (Version None)
Quarter: 2007Q4

REPORT INFORMATION
  Report Type: 
  Country: None (occurrence: None)
  Receive Date: 20071030
  Receipt Date: 20071030
  Transmission Date: 20080405
  Serious: Yes (Hospitalization)
  Sender: FDA-Public Use
  Company Number: None

PATIENT
  Sex: Male

DRUGS (7)
  1. REVLIMID [Suspect]
     Indication: CHRONIC LYMPHOCYTIC LEUKAEMIA
     Dosage: 10MG DAILY PO
     Route: 048
  2. NEUPOGEN [Concomitant]
  3. CIPRO [Concomitant]
  4. OPIUM TINCTURE [Concomitant]
  5. LOMOTIL [Concomitant]
  6. LOVENOX [Concomitant]
  7. KEFLEX [Concomitant]

REACTIONS (2)
  - NEUTROPENIA [None]
  - WOUND INFECTION PSEUDOMONAS [None]
